FAERS Safety Report 4615499-5 (Version None)
Quarter: 2005Q2

REPORT INFORMATION
  Report Type: 
  Country: None (occurrence: None)
  Receive Date: 20050311
  Receipt Date: 20050105
  Transmission Date: 20051028
  Serious: No
  Sender: FDA-Public Use
  Company Number: 2005-BP-00174BP

PATIENT
  Age: 66 Year
  Sex: Female

DRUGS (10)
  1. SPIRIVA [Suspect]
     Indication: CHRONIC OBSTRUCTIVE PULMONARY DISEASE
     Dosage: 18 MCG (18 MCG, OD), IH
     Route: 055
     Dates: start: 20040701
  2. ADVAIR DISKUS 100/50 [Concomitant]
  3. ALBUTEROL [Concomitant]
  4. LASIX [Concomitant]
  5. PLAVIX [Concomitant]
  6. LOTENSIN [Concomitant]
  7. THEOPHYLLINE [Concomitant]
  8. LIPITOR [Concomitant]
  9. MIACALCIN [Concomitant]
  10. PROTONIX [Concomitant]

REACTIONS (1)
  - AGEUSIA [None]
